FAERS Safety Report 13697713 (Version 1)
Quarter: 2017Q2

REPORT INFORMATION
  Report Type: Spontaneous
  Country: US (occurrence: US)
  Receive Date: 20170627
  Receipt Date: 20170627
  Transmission Date: 20170830
  Serious: No
  Sender: FDA-Public Use
  Company Number: None

PATIENT
  Age: 88 Year
  Sex: Female

DRUGS (2)
  1. KISQALI [Suspect]
     Active Substance: RIBOCICLIB
     Indication: BREAST CANCER FEMALE
     Route: 048
     Dates: start: 20170605
  2. KISQALI [Suspect]
     Active Substance: RIBOCICLIB
     Indication: BONE CANCER METASTATIC
     Route: 048
     Dates: start: 20170605

REACTIONS (1)
  - Renal failure [None]

NARRATIVE: CASE EVENT DATE: 20170626
